FAERS Safety Report 15776983 (Version 1)
Quarter: 2018Q4

REPORT INFORMATION
  Report Type: Spontaneous
  Country: US (occurrence: US)
  Receive Date: 20181231
  Receipt Date: 20181231
  Transmission Date: 20190205
  Serious: Yes (Hospitalization)
  Sender: FDA-Public Use
  Company Number: US-AMGEN-USASP2018186612

PATIENT
  Sex: Male

DRUGS (4)
  1. XGEVA [Suspect]
     Active Substance: DENOSUMAB
     Indication: PRODUCT USED FOR UNKNOWN INDICATION
     Dosage: UNK UNK, QMO
     Route: 065
  2. XTANDI [Concomitant]
     Active Substance: ENZALUTAMIDE
     Indication: PROSTATE CANCER METASTATIC
     Dosage: 160 MG, QD
     Dates: start: 20170128, end: 20170828
  3. COREG [Concomitant]
     Active Substance: CARVEDILOL
     Dosage: 6.25 MG, BID
  4. TRELSTAR [Concomitant]
     Active Substance: TRIPTORELIN PAMOATE
     Dosage: 11.25 MG, Q3MO
     Route: 058

REACTIONS (3)
  - Blood pressure increased [Unknown]
  - Chest pain [Unknown]
  - Troponin increased [Unknown]

NARRATIVE: CASE EVENT DATE: 201704
